FAERS Safety Report 7756965-3 (Version None)
Quarter: 2011Q3

REPORT INFORMATION
  Report Type: 
  Country: None (occurrence: None)
  Receive Date: 20110916
  Receipt Date: 20110916
  Transmission Date: 20111222
  Serious: Yes (Other)
  Sender: FDA-Public Use
  Company Number: None

PATIENT
  Age: 17 Year
  Sex: Female
  Weight: 77.564 kg

DRUGS (2)
  1. RISPERIDONE [Suspect]
     Indication: AFFECTIVE DISORDER
     Dosage: 1 MG
     Route: 048
     Dates: start: 20110804, end: 20110830
  2. RISPERIDONE [Suspect]
     Indication: PSYCHOTIC DISORDER
     Dosage: 1 MG
     Route: 048
     Dates: start: 20110804, end: 20110830

REACTIONS (2)
  - BLOOD PROLACTIN INCREASED [None]
  - BREAST DISCHARGE [None]
